FAERS Safety Report 25011050 (Version 2)
Quarter: 2025Q1

REPORT INFORMATION
  Report Type: Report from Study
  Country: CR (occurrence: CR)
  Receive Date: 20250225
  Receipt Date: 20250331
  Transmission Date: 20250409
  Serious: Yes (Other)
  Sender: NOVARTIS
  Company Number: CR-002147023-NVSC2023CR271962

PATIENT
  Age: 69 Year
  Sex: Female
  Weight: 57 kg

DRUGS (4)
  1. KISQALI [Suspect]
     Active Substance: RIBOCICLIB
     Indication: Breast cancer
     Dosage: 600 MG, QD
     Route: 048
     Dates: start: 20230620
  2. KISQALI [Suspect]
     Active Substance: RIBOCICLIB
     Indication: Metastases to bone
     Route: 048
     Dates: start: 202306, end: 202503
  3. KISQALI [Suspect]
     Active Substance: RIBOCICLIB
     Indication: Breast cancer metastatic
  4. ANASTROZOLE [Concomitant]
     Active Substance: ANASTROZOLE
     Indication: Product used for unknown indication
     Route: 065

REACTIONS (10)
  - Pancytopenia [Unknown]
  - Neutropenia [Unknown]
  - Metastasis [Unknown]
  - Hypersensitivity [Recovered/Resolved with Sequelae]
  - Decreased immune responsiveness [Unknown]
  - Rash macular [Not Recovered/Not Resolved]
  - Pruritus [Unknown]
  - Erythema [Unknown]
  - Vitiligo [Unknown]
  - Pain [Unknown]

NARRATIVE: CASE EVENT DATE: 20231201
